FAERS Safety Report 5106788-9 (Version None)
Quarter: 2006Q3

REPORT INFORMATION
  Report Type: 
  Country: None (occurrence: None)
  Receive Date: 20060918
  Receipt Date: 20060608
  Transmission Date: 20061208
  Serious: Yes (Death, Hospitalization)
  Sender: FDA-Public Use
  Company Number: US-SANOFI-SYNTHELABO-A03200603718

PATIENT
  Sex: Female

DRUGS (3)
  1. PLAVIX [Suspect]
     Indication: CORONARY ARTERY DISEASE
     Dosage: UNK
     Route: 048
     Dates: start: 20040623, end: 20040701
  2. LIPITOR [Concomitant]
     Dosage: UNK
     Route: 065
  3. HYZAAR [Concomitant]
     Dosage: UNK
     Route: 065

REACTIONS (38)
  - ACUTE RESPIRATORY DISTRESS SYNDROME [None]
  - ALANINE AMINOTRANSFERASE INCREASED [None]
  - ANAEMIA [None]
  - AORTIC ANEURYSM [None]
  - ASPARTATE AMINOTRANSFERASE INCREASED [None]
  - ASTHENIA [None]
  - BLINDNESS [None]
  - BLINDNESS TRANSIENT [None]
  - BRADYCARDIA [None]
  - CAROTID ARTERY ANEURYSM [None]
  - CHOLELITHIASIS [None]
  - DEPRESSED LEVEL OF CONSCIOUSNESS [None]
  - DIFFUSE ALVEOLAR DAMAGE [None]
  - DIVERTICULUM [None]
  - DYSPNOEA [None]
  - ENCEPHALOPATHY [None]
  - FEELING COLD [None]
  - HYPOTENSION [None]
  - HYPOXIA [None]
  - INTERSTITIAL LUNG DISEASE [None]
  - LETHARGY [None]
  - LEUKOPENIA [None]
  - LUNG INFILTRATION [None]
  - MENTAL DISORDER [None]
  - MYALGIA [None]
  - NEUTROPENIA [None]
  - PNEUMONIA [None]
  - PNEUMOTHORAX [None]
  - PSEUDOMONAS INFECTION [None]
  - PYREXIA [None]
  - RESPIRATORY FAILURE [None]
  - SEPSIS SYNDROME [None]
  - SHOCK [None]
  - SYNCOPE [None]
  - TEMPERATURE INTOLERANCE [None]
  - THROMBOCYTOPENIA [None]
  - UNRESPONSIVE TO STIMULI [None]
  - VOMITING [None]
